FAERS Safety Report 4769128-0 (Version None)
Quarter: 2005Q3

REPORT INFORMATION
  Report Type: 
  Country: None (occurrence: None)
  Receive Date: 20050912
  Receipt Date: 20050614
  Transmission Date: 20060218
  Serious: Yes (Disabling)
  Sender: FDA-Public Use
  Company Number: 2005-01245

PATIENT
  Age: 77 Year
  Sex: Male

DRUGS (15)
  1. VELCADE [Suspect]
     Indication: MULTIPLE MYELOMA
     Dosage: 1.90 MG, INTRAVENOUS
     Route: 042
     Dates: start: 20041126, end: 20050603
  2. ZOFRAN [Concomitant]
  3. AREDIA [Concomitant]
  4. VITAMIN E (VEGETABLE OIL) [Concomitant]
  5. VITAMIN C (ASCORBIC ACID) [Concomitant]
  6. OXYCODONE HCL [Concomitant]
  7. ZETIA [Concomitant]
  8. PLAVIX [Concomitant]
  9. LISINOPRIL [Concomitant]
  10. ISOSORBIDE [Concomitant]
  11. WARFARIN [Concomitant]
  12. PREVACID [Concomitant]
  13. DEXAMETHASONE [Concomitant]
  14. TOPROL-XL [Concomitant]
  15. ALLOPURINOL [Concomitant]

REACTIONS (1)
  - VISION BLURRED [None]
